APPROVED DRUG PRODUCT: TOLMETIN SODIUM
Active Ingredient: TOLMETIN SODIUM
Strength: EQ 400MG BASE
Dosage Form/Route: CAPSULE;ORAL
Application: A073311 | Product #001
Applicant: SUN PHARMACEUTICAL INDUSTRIES INC
Approved: Nov 27, 1991 | RLD: No | RS: No | Type: DISCN